FAERS Safety Report 4821378-0 (Version None)
Quarter: 2005Q4

REPORT INFORMATION
  Report Type: 
  Country: None (occurrence: None)
  Receive Date: 20051107
  Receipt Date: 20051026
  Transmission Date: 20060501
  Serious: Yes (Hospitalization, Other)
  Sender: FDA-Public Use
  Company Number: AU-AVENTIS-200519493GDDC

PATIENT
  Age: 58 Year
  Sex: Female

DRUGS (7)
  1. ARAVA [Suspect]
     Indication: RHEUMATOID ARTHRITIS
     Dosage: DOSE: 10 (ALTERNATING DAYS)
     Route: 048
     Dates: start: 20041201, end: 20050907
  2. CORTICOSTEROIDS [Concomitant]
     Dosage: DOSE: UNK
  3. GLYADE [Concomitant]
     Dosage: DOSE: UNK
  4. LASIX [Concomitant]
     Dosage: DOSE: UNK
  5. EFFEXOR [Concomitant]
     Dosage: DOSE: UNK
  6. ACETAMINOPHEN [Concomitant]
     Dosage: DOSE: UNK
  7. LIPITOR [Concomitant]
     Dosage: DOSE: UNK

REACTIONS (4)
  - ANGINA PECTORIS [None]
  - CARDIOMYOPATHY [None]
  - DYSPNOEA [None]
  - PULMONARY OEDEMA [None]
